FAERS Safety Report 10728843 (Version 1)
Quarter: 2015Q1

REPORT INFORMATION
  Report Type: Spontaneous
  Country: FR (occurrence: FR)
  Receive Date: 20150122
  Receipt Date: 20150122
  Transmission Date: 20150721
  Serious: Yes (Hospitalization)
  Sender: FDA-Public Use
  Company Number: FR-MERCK-1501FRA005584

PATIENT
  Age: 34 Year
  Sex: Female

DRUGS (5)
  1. ORGALUTRAN [Suspect]
     Active Substance: GANIRELIX ACETATE
     Indication: OVULATION INDUCTION
     Dosage: UNK, QD
     Dates: start: 20140910, end: 20140913
  2. KARDEGIC [Suspect]
     Active Substance: ASPIRIN LYSINE
     Indication: CEREBROVASCULAR ACCIDENT
     Dosage: UNK
     Route: 048
  3. OVITRELLE [Suspect]
     Active Substance: CHORIOGONADOTROPIN ALFA
     Indication: OVULATION INDUCTION
     Dosage: UNK
     Dates: start: 20140914, end: 20140914
  4. PROVAMES [Suspect]
     Active Substance: ESTRADIOL
     Indication: OVULATION INDUCTION
     Dosage: 2 DF, UNK,
     Route: 048
     Dates: start: 20140904, end: 20140904
  5. GONAL-F [Suspect]
     Active Substance: FOLLITROPIN
     Indication: OVULATION INDUCTION
     Dosage: UNK, TOTAL DAILY DOSE: 150(UNITS NOT REPORTED)
     Route: 058
     Dates: start: 20140905, end: 20140913

REACTIONS (5)
  - Ovarian hyperstimulation syndrome [Recovered/Resolved]
  - Peritoneal haemorrhage [Recovered/Resolved]
  - Ascites [Recovered/Resolved]
  - Anaemia [Recovered/Resolved]
  - Abdominal pain [Recovered/Resolved]

NARRATIVE: CASE EVENT DATE: 20140917
